FAERS Safety Report 13564958 (Version 1)
Quarter: 2017Q2

REPORT INFORMATION
  Report Type: Spontaneous
  Country: US (occurrence: US)
  Receive Date: 20170519
  Receipt Date: 20170519
  Transmission Date: 20170830
  Serious: No
  Sender: FDA-Public Use
  Company Number: US-ASTRAZENECA-2017SE52898

PATIENT
  Sex: Female

DRUGS (1)
  1. LYNPARZA [Suspect]
     Active Substance: OLAPARIB
     Dosage: 8 PILLS IN THE MORNING AND 8 PILLS AT NIGHT
     Route: 048
     Dates: start: 20170420

REACTIONS (8)
  - Haemorrhoids [Unknown]
  - Vomiting [Unknown]
  - Fatigue [Unknown]
  - Somnolence [Unknown]
  - Nausea [Unknown]
  - Frequent bowel movements [Unknown]
  - Chills [Unknown]
  - Asthenia [Unknown]
